FAERS Safety Report 24976734 (Version 1)
Quarter: 2025Q1

REPORT INFORMATION
  Report Type: Spontaneous
  Country: US (occurrence: US)
  Receive Date: 20250217
  Receipt Date: 20250217
  Transmission Date: 20250409
  Serious: Yes (Other)
  Sender: INCYTE
  Company Number: US-INCYTE CORPORATION-2025IN001604

PATIENT

DRUGS (1)
  1. JAKAFI [Suspect]
     Active Substance: RUXOLITINIB
     Indication: Product used for unknown indication
     Dosage: 25 MILLIGRAM, BID
     Route: 048

REACTIONS (2)
  - Squamous cell carcinoma of skin [Unknown]
  - Platelet count increased [Not Recovered/Not Resolved]
